FAERS Safety Report 8805976 (Version 1)
Quarter: 2012Q4

REPORT INFORMATION
  Report Type: Spontaneous
  Country: US (occurrence: None)
  Receive Date: 20120919
  Receipt Date: 20120919
  Transmission Date: 20130627
  Serious: No
  Sender: FDA-Public Use
  Company Number: None

PATIENT
  Age: 39 Year
  Sex: Male
  Weight: 79.38 kg

DRUGS (1)
  1. CIPROFLOXACIN [Suspect]
     Indication: PROSTATITIS
     Dosage: 1 capsule 2 times a day po
     Route: 048
     Dates: start: 20120823, end: 20120826

REACTIONS (5)
  - Tendon pain [None]
  - Gait disturbance [None]
  - Pain in extremity [None]
  - Muscle tightness [None]
  - Tendon pain [None]
